FAERS Safety Report 24072220 (Version 1)
Quarter: 2024Q3

REPORT INFORMATION
  Report Type: Spontaneous
  Country: FR (occurrence: FR)
  Receive Date: 20240710
  Receipt Date: 20240710
  Transmission Date: 20241016
  Serious: Yes (Death)
  Sender: CHEPLAPHARM
  Company Number: None

PATIENT
  Age: 54 Year
  Sex: Male
  Weight: 80 kg

DRUGS (20)
  1. OLANZAPINE [Interacting]
     Active Substance: OLANZAPINE
     Indication: Schizophrenia
     Dosage: DAILY DOSE: 27.5 MILLIGRAM
     Route: 048
     Dates: start: 20240507, end: 20240517
  2. OLANZAPINE [Interacting]
     Active Substance: OLANZAPINE
     Indication: Schizophrenia
     Dosage: DAILY DOSE: 20 MILLIGRAM
     Route: 048
     Dates: end: 20240505
  3. LORMETAZEPAM [Interacting]
     Active Substance: LORMETAZEPAM
     Indication: Anxiety
     Dosage: DAILY DOSE: 2 MILLIGRAM
     Route: 048
     Dates: start: 20240516, end: 20240517
  4. DIAZEPAM [Interacting]
     Active Substance: DIAZEPAM
     Indication: Anxiety
     Dosage: DAILY DOSE: 30 MILLIGRAM
     Route: 048
     Dates: end: 20240517
  5. LOXAPINE [Interacting]
     Active Substance: LOXAPINE
     Indication: Schizophrenia
     Dosage: DAILY DOSE: 75 MILLIGRAM
     Route: 048
     Dates: start: 20240114, end: 20240228
  6. LOXAPINE [Interacting]
     Active Substance: LOXAPINE
     Indication: Schizophrenia
     Dosage: DAILY DOSE: 125 MILLIGRAM
     Route: 048
     Dates: start: 20240228, end: 20240306
  7. LOXAPINE [Interacting]
     Active Substance: LOXAPINE
     Indication: Schizophrenia
     Dosage: DAILY DOSE: 175 MILLIGRAM
     Route: 048
     Dates: start: 20240306, end: 20240315
  8. LOXAPINE [Interacting]
     Active Substance: LOXAPINE
     Indication: Schizophrenia
     Dosage: DAILY DOSE: 150 MILLIGRAM
     Route: 048
     Dates: start: 20240315, end: 20240319
  9. LOXAPINE [Interacting]
     Active Substance: LOXAPINE
     Indication: Schizophrenia
     Dosage: DAILY DOSE: 225 MILLIGRAM
     Route: 048
     Dates: start: 20240319, end: 20240504
  10. LOXAPINE [Interacting]
     Active Substance: LOXAPINE
     Indication: Schizophrenia
     Dosage: DAILY DOSE: 325 MILLIGRAM
     Route: 048
     Dates: start: 20240504, end: 20240506
  11. LOXAPINE [Interacting]
     Active Substance: LOXAPINE
     Indication: Schizophrenia
     Dosage: DAILY DOSE: 275 MILLIGRAM
     Route: 048
     Dates: start: 20240506, end: 20240510
  12. LOXAPINE [Interacting]
     Active Substance: LOXAPINE
     Indication: Schizophrenia
     Dosage: DAILY DOSE: 250 MILLIGRAM
     Route: 048
     Dates: start: 20240510, end: 20240517
  13. ZOPICLONE [Interacting]
     Active Substance: ZOPICLONE
     Indication: Anxiety
     Dosage: DAILY DOSE: 7.5 MILLIGRAM
     Route: 048
     Dates: start: 20240508, end: 20240516
  14. ABILIFY MAINTENA [Interacting]
     Active Substance: ARIPIPRAZOLE
     Indication: Schizophrenia
     Route: 030
     Dates: end: 20240510
  15. TRIMEBUTINE [Concomitant]
     Active Substance: TRIMEBUTINE
     Dosage: DAILY DOSE: 100 MILLIGRAM
     Route: 048
     Dates: start: 202401, end: 20240517
  16. NICOPATCH [Concomitant]
     Active Substance: NICOTINE
     Dosage: DAILY DOSE: 21 MILLIGRAM
     Route: 003
     Dates: start: 202401, end: 20240517
  17. TROPATEPINE HYDROCHLORIDE [Concomitant]
     Active Substance: TROPATEPINE HYDROCHLORIDE
     Dosage: DAILY DOSE: 20 MILLIGRAM
     Route: 048
     Dates: end: 20240517
  18. TAMSULOSIN [Concomitant]
     Active Substance: TAMSULOSIN
     Dosage: DAILY DOSE: 0.4 MILLIGRAM
     Route: 048
     Dates: start: 20240312, end: 20240517
  19. POLYETHYLENE GLYCOLS [Concomitant]
     Active Substance: POLYETHYLENE GLYCOLS
  20. MONTMORILLONITE [Concomitant]
     Active Substance: MONTMORILLONITE

REACTIONS (3)
  - Cardio-respiratory arrest [Fatal]
  - Choking [Fatal]
  - Drug interaction [Fatal]

NARRATIVE: CASE EVENT DATE: 20240101
